FAERS Safety Report 4949372-X (Version None)
Quarter: 2006Q1

REPORT INFORMATION
  Report Type: 
  Country: None (occurrence: None)
  Receive Date: 20060315
  Receipt Date: 20060224
  Transmission Date: 20060701
  Serious: Yes (Hospitalization)
  Sender: FDA-Public Use
  Company Number: US_0510122842

PATIENT
  Age: 67 Year
  Sex: Female
  Weight: 78.9 kg

DRUGS (9)
  1. ZYPREXA [Suspect]
     Indication: BIPOLAR DISORDER
     Dosage: 5 MG, DAILY (1/D), ORAL
     Route: 048
     Dates: start: 20021115, end: 20040301
  2. EFFEXOR XR [Concomitant]
  3. TRAZODONE HCL [Concomitant]
  4. POTASSIUM CHLORIDE [Concomitant]
  5. CAPTOPRIL [Concomitant]
  6. SALSALATE (SALSALATE) [Concomitant]
  7. OMEPRAZOLE [Concomitant]
  8. SPIRONOLACTONE [Concomitant]
  9. FUROSEMIDE [Concomitant]

REACTIONS (14)
  - BLOOD CHOLESTEROL INCREASED [None]
  - BLOOD TRIGLYCERIDES INCREASED [None]
  - CELLULITIS [None]
  - DECUBITUS ULCER [None]
  - DEHYDRATION [None]
  - DIABETES MELLITUS NON-INSULIN-DEPENDENT [None]
  - DIARRHOEA [None]
  - HYPERGLYCAEMIA [None]
  - HYPERLIPIDAEMIA [None]
  - LOW DENSITY LIPOPROTEIN INCREASED [None]
  - METABOLIC ACIDOSIS [None]
  - ONYCHOMYCOSIS [None]
  - RENAL FAILURE [None]
  - WEIGHT INCREASED [None]
